FAERS Safety Report 4431191-4 (Version None)
Quarter: 2004Q3

REPORT INFORMATION
  Report Type: 
  Country: None (occurrence: None)
  Receive Date: 20040817
  Receipt Date: 20040802
  Transmission Date: 20050211
  Serious: Yes (Other)
  Sender: FDA-Public Use
  Company Number: DE-2004-029798

PATIENT
  Age: 66 Year
  Sex: Female

DRUGS (1)
  1. REFLUDAN [Suspect]

REACTIONS (5)
  - ACTIVATED PARTIAL THROMBOPLASTIN TIME ABNORMAL [None]
  - BLOOD CREATINE INCREASED [None]
  - GASTRITIS HAEMORRHAGIC [None]
  - HAEMOGLOBIN DECREASED [None]
  - OVERDOSE [None]
